FAERS Safety Report 4459454-7 (Version None)
Quarter: 2004Q3

REPORT INFORMATION
  Report Type: 
  Country: None (occurrence: None)
  Receive Date: 20040927
  Receipt Date: 20040913
  Transmission Date: 20050211
  Serious: Yes (Other)
  Sender: FDA-Public Use
  Company Number: US-ABBOTT-04P-163-0273274-00

PATIENT
  Sex: Female
  Weight: 106.8 kg

DRUGS (11)
  1. HUMIRA [Suspect]
     Indication: RHEUMATOID ARTHRITIS
     Route: 058
     Dates: start: 20040505
  2. BENAZEPRIL HCL [Concomitant]
     Indication: BLOOD PRESSURE INCREASED
     Route: 048
  3. DEPAKOTE ER [Concomitant]
     Indication: BIPOLAR DISORDER
     Route: 048
  4. QUETIAPINE [Concomitant]
     Indication: BIPOLAR DISORDER
     Route: 048
  5. TEMAZEPAM [Concomitant]
     Indication: BIPOLAR DISORDER
     Route: 048
  6. OXCARBAZEPINE [Concomitant]
     Indication: BIPOLAR DISORDER
     Route: 048
  7. ISONIAZID [Concomitant]
     Indication: DRUG USE FOR UNKNOWN INDICATION
     Route: 048
  8. FOLIC ACID [Concomitant]
     Indication: VITAMIN SUPPLEMENTATION
     Route: 048
  9. NAPROXEN [Concomitant]
     Indication: RHEUMATOID ARTHRITIS
     Route: 048
  10. ESOMEPRAZOLE [Concomitant]
     Indication: GASTRIC DISORDER
     Route: 048
  11. MOMETASONE FUROATE [Concomitant]
     Indication: HYPERSENSITIVITY
     Route: 055

REACTIONS (1)
  - HEPATITIS C [None]
